FAERS Safety Report 4667365-7 (Version None)
Quarter: 2005Q2

REPORT INFORMATION
  Report Type: 
  Country: None (occurrence: None)
  Receive Date: 20050519
  Receipt Date: 20050519
  Transmission Date: 20051028
  Serious: Yes (Hospitalization)
  Sender: FDA-Public Use
  Company Number: None

PATIENT
  Sex: Female
  Weight: 83.1 kg

DRUGS (9)
  1. METHOTREXATE [Suspect]
     Dosage: 15 MG
     Dates: start: 20050509
  2. HYDROCORTISONE [Suspect]
     Dosage: 50 MG IT ON DAYS 1, 8 AND 15
     Dates: start: 20050509
  3. VINCRISTINE [Suspect]
     Dosage: 2 MG IV ON DAYS 1, 8 AND 15
     Route: 042
     Dates: start: 20050509
  4. LEUCOVORIN [Suspect]
     Dosage: 25MG/M2 IV ON DAYS 2, 9 AND 16
     Route: 042
  5. LEUCOVORIN [Suspect]
     Dosage: 5MG/M2 PO ON DAYS 3, 4 10, 11, 17 AND 18 OR UNTIL SERUM METHOTREXATE LEVEL { 0.05 MCM
     Route: 048
  6. BACTRIM DS [Suspect]
     Dosage: 1 TAB PO BID 3 DAYS/WEEK
     Route: 048
  7. LISINOPRIL [Concomitant]
  8. DIAZIDE [Concomitant]
  9. HUMALOG [Concomitant]

REACTIONS (3)
  - FATIGUE [None]
  - MALAISE [None]
  - SUPRAVENTRICULAR TACHYCARDIA [None]
